FAERS Safety Report 20901965 (Version 10)
Quarter: 2023Q2

REPORT INFORMATION
  Report Type: Report from Study
  Country: ES (occurrence: None)
  Receive Date: 20220601
  Receipt Date: 20230621
  Transmission Date: 20230722
  Serious: Yes (Hospitalization)
  Sender: FDA-Public Use
  Company Number: ES-ROCHE-3102528

PATIENT
  Age: 71 Year
  Sex: Female
  Weight: 49.3 kg

DRUGS (9)
  1. INVESTIGATIONAL PRODUCT [Suspect]
     Active Substance: INVESTIGATIONAL PRODUCT
     Indication: Metastatic gastric cancer
     Dosage: ON 19/MAY/2022, SHE RECEIVED MOST RECENT DOSE OF RO7284755 PRIOR TO AE/SAE WAS 3 MG.?FREQUENCY D1D5
     Route: 042
     Dates: start: 20220519
  2. ATEZOLIZUMAB [Suspect]
     Active Substance: ATEZOLIZUMAB
     Indication: Metastatic gastric cancer
     Dosage: ON 19/MAY/2022, SHE RECEIVED MOST RECENT DOSE OF ATEZOLIZUMAB PRIOR TO AE/SAE WAS 1200 MG
     Route: 041
     Dates: start: 20220519
  3. BISOPROLOL [Concomitant]
     Active Substance: BISOPROLOL
     Indication: Extrasystoles
     Route: 048
  4. ATORVASTATIN [Concomitant]
     Active Substance: ATORVASTATIN
     Indication: Hypercholesterolaemia
     Route: 048
  5. OMEPRAZOLE [Concomitant]
     Active Substance: OMEPRAZOLE
     Indication: Gastrointestinal disorder prophylaxis
     Route: 048
  6. TRANEXAMIC ACID [Concomitant]
     Active Substance: TRANEXAMIC ACID
     Indication: Lower gastrointestinal haemorrhage
     Route: 042
     Dates: start: 20220610, end: 20220621
  7. HUMAN RED BLOOD CELL [Concomitant]
     Active Substance: HUMAN RED BLOOD CELL
     Indication: Anaemia
     Dosage: DOSE: 1 BAG
     Route: 042
     Dates: start: 20220518, end: 20220518
  8. AMILORIDE HYDROCHLORIDE [Concomitant]
     Active Substance: AMILORIDE HYDROCHLORIDE
     Indication: Tachycardia
     Route: 048
     Dates: start: 20220607
  9. HYDROCHLOROTHIAZIDE [Concomitant]
     Active Substance: HYDROCHLOROTHIAZIDE
     Indication: Tachycardia
     Route: 048
     Dates: start: 20220607

REACTIONS (2)
  - Cytokine release syndrome [Recovered/Resolved]
  - Gastric haemorrhage [Recovered/Resolved]

NARRATIVE: CASE EVENT DATE: 20220520
